FAERS Safety Report 8853264 (Version 1)
Quarter: 2012Q4

REPORT INFORMATION
  Report Type: 
  Country: BR (occurrence: BR)
  Receive Date: 20121022
  Receipt Date: 20121022
  Transmission Date: 20130627
  Serious: Yes (Other)
  Sender: FDA-Public Use
  Company Number: BR-NOVOPROD-353085

PATIENT
  Age: 62 Year
  Sex: Female
  Weight: 95 kg

DRUGS (5)
  1. VICTOZA [Suspect]
     Indication: TYPE 2 DIABETES MELLITUS
     Dosage: 0.6 mg, qd
     Route: 058
  2. VICTOZA [Suspect]
     Dosage: 1.2 mg, qd
     Route: 058
  3. VICTOZA [Suspect]
     Dosage: 1.8 mg, qd
     Route: 058
  4. DIAMICRON [Concomitant]
     Indication: TYPE 2 DIABETES MELLITUS
     Dosage: 2 Tab, qd
     Route: 048
     Dates: start: 20000529
  5. GLIFAGE [Concomitant]
     Indication: TYPE 2 DIABETES MELLITUS
     Dosage: 2 Tab, qd
     Route: 048
     Dates: start: 20000529

REACTIONS (5)
  - Thyroid cancer [Not Recovered/Not Resolved]
  - Hypoglycaemia [Not Recovered/Not Resolved]
  - Injection site bruising [Not Recovered/Not Resolved]
  - Injection site haemorrhage [Not Recovered/Not Resolved]
  - Vomiting [Recovered/Resolved]
